FAERS Safety Report 4816592-4 (Version None)
Quarter: 2005Q4

REPORT INFORMATION
  Report Type: 
  Country: None (occurrence: None)
  Receive Date: 20051028
  Receipt Date: 20051014
  Transmission Date: 20060501
  Serious: Yes (Hospitalization)
  Sender: FDA-Public Use
  Company Number: KII-2005-0019063

PATIENT
  Age: 53 Year
  Sex: Male

DRUGS (2)
  1. OXYCONTIN [Suspect]
     Indication: BACK PAIN
  2. ACETYLSALICYLIC ACID (ACETYLSALICYLIC AICD) [Suspect]

REACTIONS (4)
  - BACK PAIN [None]
  - DRUG INEFFECTIVE [None]
  - DRUG TOLERANCE INCREASED [None]
  - INCORRECT DOSE ADMINISTERED [None]
